FAERS Safety Report 5796375-1 (Version None)
Quarter: 2008Q2

REPORT INFORMATION
  Report Type: 
  Country: None (occurrence: None)
  Receive Date: 20080630
  Receipt Date: 20080630
  Transmission Date: 20081010
  Serious: Yes (Death)
  Sender: FDA-Public Use
  Company Number: None

PATIENT
  Age: 76 Year
  Sex: Female
  Weight: 77.1115 kg

DRUGS (1)
  1. DIGITEK .125MG [Suspect]
     Indication: HEART RATE ABNORMAL
     Dates: start: 20050101, end: 20080209

REACTIONS (2)
  - CARDIAC ARREST [None]
  - PHARMACEUTICAL PRODUCT COMPLAINT [None]
